FAERS Safety Report 23625011 (Version 5)
Quarter: 2025Q4

REPORT INFORMATION
  Report Type: Spontaneous
  Country: GB (occurrence: GB)
  Receive Date: 20240313
  Receipt Date: 20251113
  Transmission Date: 20260118
  Serious: Yes (Hospitalization, Other)
  Sender: SANDOZ
  Company Number: GB-AMGEN-GBRSP2023046483.

PATIENT
  Age: 34 Year
  Sex: Female

DRUGS (67)
  1. ADALIMUMAB [Suspect]
     Active Substance: ADALIMUMAB
     Indication: Product used for unknown indication
     Dosage: UNK SOLUTION FOR INJECTION
     Route: 065
  2. ENTYVIO [Suspect]
     Active Substance: VEDOLIZUMAB
     Indication: Product used for unknown indication
     Dosage: SOLUTION FOR INJECTION
     Route: 065
  3. ENTYVIO [Suspect]
     Active Substance: VEDOLIZUMAB
     Dosage: SOLUTION FOR INJECTION
     Route: 065
  4. ENTYVIO [Suspect]
     Active Substance: VEDOLIZUMAB
     Dosage: SOLUTION FOR INJECTION
     Route: 065
  5. ENTYVIO [Suspect]
     Active Substance: VEDOLIZUMAB
     Dosage: SOLUTION FOR INJECTION
     Route: 065
  6. ENTYVIO [Suspect]
     Active Substance: VEDOLIZUMAB
     Dosage: SOLUTION FOR INJECTION
     Route: 065
  7. ENTYVIO [Suspect]
     Active Substance: VEDOLIZUMAB
     Dosage: SOLUTION FOR INJECTION
     Route: 065
  8. ENTYVIO [Suspect]
     Active Substance: VEDOLIZUMAB
     Dosage: SOLUTION FOR INJECTION
     Route: 065
  9. ENTYVIO [Suspect]
     Active Substance: VEDOLIZUMAB
     Dosage: SOLUTION FOR INJECTION
     Route: 065
  10. ENTYVIO [Suspect]
     Active Substance: VEDOLIZUMAB
     Dosage: SOLUTION FOR INJECTION
     Route: 065
  11. ENTYVIO [Suspect]
     Active Substance: VEDOLIZUMAB
     Dosage: SOLUTION FOR INJECTION
     Route: 065
  12. ENTYVIO [Suspect]
     Active Substance: VEDOLIZUMAB
     Dosage: SOLUTION FOR INJECTION
     Route: 065
  13. ENTYVIO [Suspect]
     Active Substance: VEDOLIZUMAB
     Dosage: SOLUTION FOR INJECTION
     Route: 065
  14. ENTYVIO [Suspect]
     Active Substance: VEDOLIZUMAB
     Dosage: UNK
     Route: 050
  15. ENTYVIO [Suspect]
     Active Substance: VEDOLIZUMAB
     Dosage: UNK
     Route: 050
  16. ENTYVIO [Suspect]
     Active Substance: VEDOLIZUMAB
     Dosage: UNK
     Route: 050
  17. ENTYVIO [Suspect]
     Active Substance: VEDOLIZUMAB
     Dosage: UNK
     Route: 050
  18. ENTYVIO [Suspect]
     Active Substance: VEDOLIZUMAB
     Dosage: UNK
     Route: 050
  19. ENTYVIO [Suspect]
     Active Substance: VEDOLIZUMAB
     Dosage: UNK
     Route: 050
  20. INFLIXIMAB [Suspect]
     Active Substance: INFLIXIMAB
     Dosage: UNK
     Route: 042
  21. INFLIXIMAB [Suspect]
     Active Substance: INFLIXIMAB
     Dosage: UNK
     Route: 042
  22. INFLIXIMAB [Suspect]
     Active Substance: INFLIXIMAB
     Dosage: UNK
     Route: 065
  23. INFLIXIMAB [Suspect]
     Active Substance: INFLIXIMAB
     Indication: Product used for unknown indication
     Dosage: UNK SOLUTION FOR INJECTION
     Route: 050
  24. INFLIXIMAB [Suspect]
     Active Substance: INFLIXIMAB
     Dosage: UNK; ;
     Route: 050
  25. INFLIXIMAB [Suspect]
     Active Substance: INFLIXIMAB
     Dosage: UNK
     Route: 065
  26. INFLIXIMAB [Suspect]
     Active Substance: INFLIXIMAB
     Dosage: UNK
     Route: 065
  27. INFLIXIMAB [Suspect]
     Active Substance: INFLIXIMAB
     Dosage: UNKNOWN
     Route: 065
  28. INFLIXIMAB [Suspect]
     Active Substance: INFLIXIMAB
     Dosage: UNKNOWN
     Route: 065
  29. INFLIXIMAB [Suspect]
     Active Substance: INFLIXIMAB
     Indication: Crohn^s disease
     Dosage: UNK
     Route: 042
  30. INFLIXIMAB [Suspect]
     Active Substance: INFLIXIMAB
     Dosage: UNK
     Route: 042
  31. INFLIXIMAB [Suspect]
     Active Substance: INFLIXIMAB
     Dosage: UNK
     Route: 042
  32. INFLIXIMAB [Suspect]
     Active Substance: INFLIXIMAB
     Dosage: UNK
     Route: 042
  33. INFLIXIMAB [Suspect]
     Active Substance: INFLIXIMAB
     Dosage: UNK
     Route: 042
  34. INFLIXIMAB [Suspect]
     Active Substance: INFLIXIMAB
     Dosage: UNK
     Route: 042
  35. INFLIXIMAB [Suspect]
     Active Substance: INFLIXIMAB
     Dosage: UNK
     Route: 050
  36. INFLIXIMAB [Suspect]
     Active Substance: INFLIXIMAB
     Dosage: UNK
     Route: 050
  37. INFLIXIMAB [Suspect]
     Active Substance: INFLIXIMAB
     Dosage: UNK
     Route: 050
  38. INFLIXIMAB [Suspect]
     Active Substance: INFLIXIMAB
     Dosage: UNK
     Route: 050
  39. INFLIXIMAB [Suspect]
     Active Substance: INFLIXIMAB
     Dosage: UNK
     Route: 065
  40. INFLIXIMAB [Suspect]
     Active Substance: INFLIXIMAB
     Dosage: UNK
     Route: 065
  41. INFLIXIMAB [Suspect]
     Active Substance: INFLIXIMAB
     Dosage: UNK
     Route: 065
  42. INFLIXIMAB [Suspect]
     Active Substance: INFLIXIMAB
     Dosage: UNK
     Route: 065
  43. METHOTREXATE [Suspect]
     Active Substance: METHOTREXATE
     Indication: Product used for unknown indication
     Dosage: UNK SOLUTION FOR INJECTION
     Route: 065
  44. METHOTREXATE SODIUM [Suspect]
     Active Substance: METHOTREXATE SODIUM
     Dosage: UNK
     Route: 050
  45. METHOTREXATE SODIUM [Suspect]
     Active Substance: METHOTREXATE SODIUM
     Dosage: UNK
     Route: 065
  46. METHOTREXATE SODIUM [Suspect]
     Active Substance: METHOTREXATE SODIUM
     Indication: Product used for unknown indication
     Dosage: UNK SOLUTION FOR INJECTION
     Route: 050
  47. REMICADE [Suspect]
     Active Substance: INFLIXIMAB
     Dosage: UNK
     Route: 042
  48. REMICADE [Suspect]
     Active Substance: INFLIXIMAB
     Dosage: UNK
     Route: 042
  49. REMICADE [Suspect]
     Active Substance: INFLIXIMAB
     Indication: Crohn^s disease
     Dosage: UNK SOLUTION FOR INJECTION
     Route: 042
  50. RIFAXIMIN [Suspect]
     Active Substance: RIFAXIMIN
     Dosage: FILM COATED TABLET
     Route: 050
  51. RIFAXIMIN [Suspect]
     Active Substance: RIFAXIMIN
     Dosage: FILM COATED TABLET
     Route: 065
  52. RIFAXIMIN [Suspect]
     Active Substance: RIFAXIMIN
     Dosage: UNK
     Route: 050
  53. RIFAXIMIN [Suspect]
     Active Substance: RIFAXIMIN
     Indication: Product used for unknown indication
     Dosage: UNK SOLUTION FOR INJECTION
     Route: 050
  54. RIFAXIMIN [Suspect]
     Active Substance: RIFAXIMIN
     Dosage: UNK
     Route: 050
  55. RIFAXIMIN [Suspect]
     Active Substance: RIFAXIMIN
     Dosage: UNK
     Route: 050
  56. RIFAXIMIN [Suspect]
     Active Substance: RIFAXIMIN
     Dosage: UNK
     Route: 050
  57. RIFAXIMIN [Suspect]
     Active Substance: RIFAXIMIN
     Dosage: UNK
     Route: 050
  58. RIFAXIMIN [Suspect]
     Active Substance: RIFAXIMIN
     Dosage: UNK
     Route: 050
  59. RIFAXIMIN [Suspect]
     Active Substance: RIFAXIMIN
     Indication: Product used for unknown indication
     Dosage: UNK SOLUTION FOR INJECTION
     Route: 050
  60. VEDOLIZUMAB [Suspect]
     Active Substance: VEDOLIZUMAB
     Dosage: UNK
     Route: 050
  61. VEDOLIZUMAB [Suspect]
     Active Substance: VEDOLIZUMAB
     Indication: Crohn^s disease
     Dosage: UNK SOLUTION FOR INJECTION
     Route: 050
  62. VEDOLIZUMAB [Suspect]
     Active Substance: VEDOLIZUMAB
     Indication: Crohn^s disease
     Dosage: UNK
     Route: 065
  63. HYRIMOZ [Concomitant]
     Active Substance: ADALIMUMAB-ADAZ
     Indication: Product used for unknown indication
     Dosage: UNK, SENSO-READ PEN; ; SOLUTION FOR INJECTION
     Route: 065
  64. HYRIMOZ [Concomitant]
     Active Substance: ADALIMUMAB-ADAZ
     Dosage: UNK, SENSO-READ PEN
     Route: 050
  65. HYRIMOZ [Concomitant]
     Active Substance: ADALIMUMAB-ADAZ
     Indication: Crohn^s disease
     Dosage: UNK, SENSO-READ PEN; ;
     Route: 050
  66. HYRIMOZ [Concomitant]
     Active Substance: ADALIMUMAB-ADAZ
     Dosage: UNK, SENSO-READ PEN; ;
     Route: 050
  67. USTEKINUMAB [Concomitant]
     Active Substance: USTEKINUMAB
     Indication: Crohn^s disease
     Dosage: UNK
     Route: 065
     Dates: start: 20211112

REACTIONS (17)
  - Crohn^s disease [Unknown]
  - Frequent bowel movements [Unknown]
  - Nerve injury [Unknown]
  - Incontinence [Unknown]
  - Gastrointestinal microorganism overgrowth [Unknown]
  - Small intestinal obstruction [Unknown]
  - Drug specific antibody [Unknown]
  - Quality of life decreased [Unknown]
  - Impaired quality of life [Unknown]
  - Pancreatitis [Unknown]
  - Pneumonia [Unknown]
  - Drug ineffective [Unknown]
  - Small intestinal obstruction [Unknown]
  - Crohn^s disease [Unknown]
  - Quality of life decreased [Unknown]
  - Quality of life decreased [Unknown]
  - Drug ineffective [Unknown]

NARRATIVE: CASE EVENT DATE: 20220101
